FAERS Safety Report 10050212 (Version 2)
Quarter: 2014Q2

REPORT INFORMATION
  Report Type: Spontaneous
  Country: GB (occurrence: GB)
  Receive Date: 20140401
  Receipt Date: 20140401
  Transmission Date: 20141212
  Serious: Yes (Other)
  Sender: FDA-Public Use
  Company Number: GB-SA-2014SA028255

PATIENT
  Age: 24 Year
  Sex: Male

DRUGS (9)
  1. LANTUS [Suspect]
     Indication: DIABETES MELLITUS
     Dosage: DOSE:6 UNIT(S)
     Route: 058
  2. NOVORAPID [Suspect]
     Indication: PRODUCT USED FOR UNKNOWN INDICATION
     Route: 065
  3. PARACETAMOL [Concomitant]
     Indication: PAIN
     Route: 048
     Dates: start: 20140218, end: 20140304
  4. DIHYDROCODEINE [Concomitant]
     Indication: PAIN
     Route: 048
     Dates: start: 20140218, end: 20140304
  5. DALTEPARIN [Concomitant]
     Indication: THROMBOSIS PROPHYLAXIS
     Dosage: DOSE:500 UNIT(S)
     Route: 058
     Dates: start: 20140218, end: 20140304
  6. CO-AMOXICLAV [Concomitant]
     Route: 042
     Dates: start: 20140221, end: 20140224
  7. LAXIDO [Concomitant]
     Dosage: FORM: SACHET
     Dates: start: 20140221, end: 20140304
  8. SENNA [Concomitant]
     Dates: start: 20140228, end: 20140304
  9. SALINE [Concomitant]
     Dosage: SALINE NEBULIZER 0.9%
     Dates: start: 20140220, end: 20140226

REACTIONS (3)
  - Diabetic ketoacidosis [Recovered/Resolved]
  - Blood glucose increased [Recovered/Resolved]
  - Vomiting [Recovered/Resolved]
